FAERS Safety Report 6453112-5 (Version None)
Quarter: 2009Q4

REPORT INFORMATION
  Report Type: 
  Country: None (occurrence: None)
  Receive Date: 20091123
  Receipt Date: 20091123
  Transmission Date: 20100525
  Serious: Yes (Life-Threatening)
  Sender: FDA-Public Use
  Company Number: None

PATIENT
  Age: 8 Year
  Sex: Male
  Weight: 10.8863 kg

DRUGS (1)
  1. TACROLIMUS [Suspect]
     Indication: LIVER TRANSPLANT
     Dosage: 0.9MG BID PO
     Route: 048
     Dates: start: 20091017, end: 20091118

REACTIONS (3)
  - DRUG LEVEL DECREASED [None]
  - LIVER FUNCTION TEST ABNORMAL [None]
  - LIVER TRANSPLANT REJECTION [None]
